FAERS Safety Report 13268053 (Version 3)
Quarter: 2017Q1

REPORT INFORMATION
  Report Type: Spontaneous
  Country: IT (occurrence: IT)
  Receive Date: 20170224
  Receipt Date: 20170327
  Transmission Date: 20170428
  Serious: Yes (Hospitalization)
  Sender: FDA-Public Use
  Company Number: IT-TEVA-741093ACC

PATIENT
  Age: 82 Year
  Sex: Female

DRUGS (8)
  1. CLONIDINA [Concomitant]
     Indication: PRODUCT USED FOR UNKNOWN INDICATION
     Route: 062
  2. AMLODIPINA [Concomitant]
     Active Substance: AMLODIPINE BESYLATE
     Indication: PRODUCT USED FOR UNKNOWN INDICATION
     Dosage: 5 MILLIGRAM DAILY;
     Route: 065
  3. NITROGLICERINA [Concomitant]
     Active Substance: NITROGLYCERIN
     Indication: PRODUCT USED FOR UNKNOWN INDICATION
     Dosage: 10 MILLIGRAM DAILY;
     Route: 062
  4. CLOPIDOGREL BESILATE [Concomitant]
     Active Substance: CLOPIDOGREL BESILATE
     Indication: PRODUCT USED FOR UNKNOWN INDICATION
     Dosage: 75 MILLICURIES DAILY;
     Route: 065
  5. ALLOPURINOLO [Concomitant]
     Active Substance: ALLOPURINOL
     Indication: PRODUCT USED FOR UNKNOWN INDICATION
  6. URSODEOXYCHOLIC ACID [Concomitant]
     Active Substance: URSODIOL
     Dosage: 200 MILLIGRAM DAILY;
     Route: 065
  7. PAROXETINE. [Suspect]
     Active Substance: PAROXETINE
     Indication: PRODUCT USED FOR UNKNOWN INDICATION
     Dosage: 20 MILLIGRAM DAILY;
  8. ATORVASTATINA [Concomitant]
     Active Substance: ATORVASTATIN
     Indication: PRODUCT USED FOR UNKNOWN INDICATION
     Dosage: 20 MILLIGRAM DAILY;
     Route: 065

REACTIONS (7)
  - Hyponatraemia [Recovered/Resolved]
  - Cognitive disorder [Recovered/Resolved]
  - Fall [Recovered/Resolved]
  - Inappropriate antidiuretic hormone secretion [Recovered/Resolved]
  - Vascular encephalopathy [Recovered/Resolved]
  - Injury [Recovered/Resolved]
  - Movement disorder [Recovered/Resolved]
